FAERS Safety Report 4393916-6 (Version None)
Quarter: 2004Q3

REPORT INFORMATION
  Report Type: 
  Country: None (occurrence: None)
  Receive Date: 20040702
  Receipt Date: 20040629
  Transmission Date: 20050211
  Serious: Yes (Hospitalization)
  Sender: FDA-Public Use
  Company Number: TPA2004A00802

PATIENT
  Age: 79 Year
  Sex: Male
  Weight: 106.1417 kg

DRUGS (9)
  1. ACTOS [Suspect]
     Indication: DIABETES MELLITUS NON-INSULIN-DEPENDENT
     Dosage: 30 MG, 1 IN 1 D, PER ORAL
     Route: 048
     Dates: start: 20030629
  2. STARLIX [Concomitant]
  3. PLAVIX [Concomitant]
  4. ISOSORBIDE MONONITRATE [Concomitant]
  5. MAVIK [Concomitant]
  6. ASPIRIN [Concomitant]
  7. TOPROL-XL [Concomitant]
  8. LIPITOR [Concomitant]
  9. NIASPAN [Concomitant]

REACTIONS (2)
  - DIZZINESS [None]
  - VOMITING [None]
